FAERS Safety Report 9214849 (Version 3)
Quarter: 2013Q3

REPORT INFORMATION
  Report Type: Spontaneous
  Country: ES (occurrence: ES)
  Receive Date: 20130405
  Receipt Date: 20130812
  Transmission Date: 20140515
  Serious: Yes (Other)
  Sender: FDA-Public Use
  Company Number: ES-GLAXOSMITHKLINE-B0880554A

PATIENT
  Age: 30 Year
  Sex: Female

DRUGS (3)
  1. ORLISTAT [Suspect]
     Indication: WEIGHT DECREASED
     Dosage: 60MG SINGLE DOSE
     Route: 048
  2. LEXATIN [Concomitant]
     Route: 048
  3. OMACOR [Concomitant]

REACTIONS (2)
  - Pancreatitis [Recovered/Resolved]
  - Diarrhoea [Recovered/Resolved]
